FAERS Safety Report 9728029 (Version 1)
Quarter: 2013Q4

REPORT INFORMATION
  Report Type: Spontaneous
  Country: GB (occurrence: None)
  Receive Date: 20131127
  Receipt Date: 20131127
  Transmission Date: 20140711
  Serious: Yes (Hospitalization)
  Sender: FDA-Public Use
  Company Number: 2029831

PATIENT
  Age: 42 Year
  Sex: Female
  Weight: 63.2 kg

DRUGS (5)
  1. DOCETAXEL [Suspect]
     Indication: BREAST CANCER
     Route: 042
     Dates: start: 20120824
  2. TRASTUZUMAB [Suspect]
     Indication: BREAST CANCER
     Route: 042
     Dates: start: 20130824
  3. BENZYDAMINE HYDROCHLORIDE [Concomitant]
  4. CHLORPHENAMINE [Concomitant]
  5. PERTUZUMAB [Concomitant]

REACTIONS (4)
  - Neutropenic sepsis [None]
  - Febrile neutropenia [None]
  - Anaemia [None]
  - Haematotoxicity [None]
